FAERS Safety Report 10356318 (Version 1)
Quarter: 2014Q3

REPORT INFORMATION
  Report Type: Spontaneous
  Country: PL (occurrence: PL)
  Receive Date: 20140801
  Receipt Date: 20140801
  Transmission Date: 20150326
  Serious: Yes (Other)
  Sender: FDA-Public Use
  Company Number: PL-ASTRAZENECA-2014SE54335

PATIENT
  Sex: Female

DRUGS (1)
  1. FASLODEX [Suspect]
     Active Substance: FULVESTRANT
     Dosage: 250
     Route: 030

REACTIONS (4)
  - Dysgeusia [Unknown]
  - Cough [Unknown]
  - Off label use [Unknown]
  - Dyspnoea [Unknown]
